FAERS Safety Report 5951152-3 (Version None)
Quarter: 2008Q4

REPORT INFORMATION
  Report Type: 
  Country: None (occurrence: None)
  Receive Date: 20081113
  Receipt Date: 20081106
  Transmission Date: 20090506
  Serious: Yes (Other)
  Sender: FDA-Public Use
  Company Number: SE-JNJFOC-20081101183

PATIENT
  Sex: Female

DRUGS (4)
  1. CONCERTA [Suspect]
     Indication: DRUG USE FOR UNKNOWN INDICATION
     Route: 048
  2. BETAPRED [Concomitant]
     Route: 065
  3. METHYLPREDNISOLONE [Concomitant]
     Route: 065
  4. TAVEGYL [Concomitant]
     Route: 065

REACTIONS (4)
  - COUGH [None]
  - DYSPHAGIA [None]
  - MUCOUS MEMBRANE DISORDER [None]
  - SNEEZING [None]
